FAERS Safety Report 21674666 (Version 1)
Quarter: 2022Q4

REPORT INFORMATION
  Report Type: Spontaneous
  Country: US (occurrence: None)
  Receive Date: 20221201
  Receipt Date: 20221201
  Transmission Date: 20230113
  Serious: Yes (Hospitalization)
  Sender: FDA-Public Use
  Company Number: None

PATIENT
  Age: 68 Year
  Sex: Female
  Weight: 59.55 kg

DRUGS (4)
  1. ORITAVANCIN [Suspect]
     Active Substance: ORITAVANCIN
     Indication: Skin bacterial infection
     Dosage: FREQUENCY : ONCE;?
     Route: 041
     Dates: start: 20221007, end: 20221021
  2. ORITAVANCIN [Suspect]
     Active Substance: ORITAVANCIN
     Indication: Staphylococcal infection
  3. ORITAVANCIN [Suspect]
     Active Substance: ORITAVANCIN
     Indication: Pseudomonas infection
  4. ORITAVANCIN [Suspect]
     Active Substance: ORITAVANCIN
     Indication: Corynebacterium infection

REACTIONS (18)
  - Back pain [None]
  - Abdominal pain [None]
  - Infusion related reaction [None]
  - Sinus tachycardia [None]
  - Electrocardiogram PR shortened [None]
  - Electrocardiogram T wave abnormal [None]
  - Left atrial enlargement [None]
  - Atrioventricular block first degree [None]
  - Chest pain [None]
  - Cardiomegaly [None]
  - Coronary artery disease [None]
  - Chest X-ray abnormal [None]
  - Thyroid disorder [None]
  - Thyroid cyst [None]
  - Disease recurrence [None]
  - Metastases to lung [None]
  - Metastases to lymph nodes [None]
  - Pleural effusion [None]

NARRATIVE: CASE EVENT DATE: 20221021
